FAERS Safety Report 7893802 (Version 3)
Quarter: 2016Q1

REPORT INFORMATION
  Report Type: Spontaneous
  Country: ES (occurrence: ES)
  Receive Date: 20110411
  Receipt Date: 20160204
  Transmission Date: 20160526
  Serious: Yes (Other)
  Sender: FDA-Public Use
  Company Number: ES-BRISTOL-MYERS SQUIBB COMPANY-15661713

PATIENT
  Age: 27 Year
  Sex: Female

DRUGS (2)
  1. METFORMIN HYDROCHLORIDE. [Suspect]
     Active Substance: METFORMIN HYDROCHLORIDE
     Indication: POLYCYSTIC OVARIES
  2. METFORMIN HYDROCHLORIDE. [Suspect]
     Active Substance: METFORMIN HYDROCHLORIDE
     Indication: INFERTILITY
     Dosage: 850 MG, UNK
     Route: 065

REACTIONS (5)
  - Multiple pregnancy [Recovered/Resolved]
  - Cervical incompetence [Recovered/Resolved]
  - Caesarean section [Unknown]
  - Live birth [Unknown]
  - Off label use [Unknown]
